FAERS Safety Report 8272637-3 (Version None)
Quarter: 2012Q2

REPORT INFORMATION
  Report Type: 
  Country: None (occurrence: None)
  Receive Date: 20120410
  Receipt Date: 20120329
  Transmission Date: 20120825
  Serious: Yes (Hospitalization)
  Sender: FDA-Public Use
  Company Number: US-ELI_LILLY_AND_COMPANY-US201204000430

PATIENT
  Sex: Female

DRUGS (1)
  1. HUMULIN N [Suspect]
     Indication: DIABETES MELLITUS
     Dosage: 10 U, TID

REACTIONS (4)
  - VASCULAR GRAFT [None]
  - EXPIRED DRUG ADMINISTERED [None]
  - EYE OPERATION [None]
  - VISUAL ACUITY REDUCED [None]
